FAERS Safety Report 19498583 (Version 1)
Quarter: 2021Q3

REPORT INFORMATION
  Report Type: Spontaneous
  Country: GB (occurrence: GB)
  Receive Date: 20210706
  Receipt Date: 20210706
  Transmission Date: 20211014
  Serious: No
  Sender: FDA-Public Use
  Company Number: GB-EMD SERONO-9249877

PATIENT
  Age: 55 Year
  Sex: Male

DRUGS (3)
  1. INLYTA [Suspect]
     Active Substance: AXITINIB
     Indication: RENAL CELL CARCINOMA
     Route: 048
     Dates: start: 20200609
  2. AVELUMAB [Suspect]
     Active Substance: AVELUMAB
     Indication: RENAL CELL CARCINOMA
     Dates: start: 20200609
  3. INLYTA [Suspect]
     Active Substance: AXITINIB
     Dosage: INITIAL DOSE OF INLYTA 5MG TWICE DAILY, CHANGED TO 10 (UNKNOWN UNIT) ON AN UNKNOWN DATE.
     Route: 048

REACTIONS (1)
  - Disease progression [Unknown]
